FAERS Safety Report 5800462-9 (Version None)
Quarter: 2008Q3

REPORT INFORMATION
  Report Type: 
  Country: None (occurrence: None)
  Receive Date: 20080703
  Receipt Date: 20080626
  Transmission Date: 20090109
  Serious: Yes (Disabling)
  Sender: FDA-Public Use
  Company Number: A0717361A

PATIENT
  Age: 32 Year
  Sex: Male
  Weight: 72.7 kg

DRUGS (1)
  1. VALTREX [Suspect]
     Indication: ORAL HERPES
     Dosage: 2G TWICE PER DAY
     Route: 048
     Dates: start: 20080324, end: 20080325

REACTIONS (1)
  - MIGRAINE [None]
